FAERS Safety Report 7498850-0 (Version None)
Quarter: 2011Q2

REPORT INFORMATION
  Report Type: 
  Country: None (occurrence: None)
  Receive Date: 20110516
  Receipt Date: 20110427
  Transmission Date: 20111010
  Serious: Yes (Hospitalization)
  Sender: FDA-Public Use
  Company Number: OMPQ-PR-1104S-0375

PATIENT
  Age: 53 Year
  Sex: Male

DRUGS (1)
  1. OMNIPAQUE 70 [Suspect]
     Indication: PRODUCT USED FOR UNKNOWN INDICATION
     Dosage: 60 ML, SINGLE DOSE;
     Dates: start: 20110427, end: 20110427

REACTIONS (2)
  - INFUSION SITE EXTRAVASATION [None]
  - COMPARTMENT SYNDROME [None]
